FAERS Safety Report 9314087 (Version 1)
Quarter: 2013Q2

REPORT INFORMATION
  Report Type: Spontaneous
  Country: IL (occurrence: None)
  Receive Date: 20130524
  Receipt Date: 20130524
  Transmission Date: 20140414
  Serious: Yes (Hospitalization)
  Sender: FDA-Public Use
  Company Number: None

PATIENT
  Age: 62 Year
  Sex: Female
  Weight: 64 kg

DRUGS (11)
  1. RIBONE [Suspect]
     Indication: OSTEOPENIA
     Dosage: 150 MG  1   1 * MONTH  BY MOUTH
     Route: 048
     Dates: start: 20130501, end: 20130501
  2. LEVOTHYROXIN [Concomitant]
  3. LAMOTRIGINE [Concomitant]
  4. AMITRIPTYLINE [Concomitant]
  5. TAMOXIFEN [Concomitant]
  6. ALPHAGAN [Concomitant]
  7. XALACOM [Concomitant]
  8. LORATADINE [Concomitant]
  9. CALTRATE+ VIT D [Concomitant]
  10. FOLEX PFS [Concomitant]
  11. VITAMIN D3 CHOLECA [Concomitant]

REACTIONS (4)
  - Myalgia [None]
  - Oedema peripheral [None]
  - Oedema peripheral [None]
  - Oedema peripheral [None]
